FAERS Safety Report 8860424 (Version 1)
Quarter: 2012Q4

REPORT INFORMATION
  Report Type: 
  Country: US (occurrence: US)
  Receive Date: 20121025
  Receipt Date: 20121025
  Transmission Date: 20130627
  Serious: Yes (Other)
  Sender: FDA-Public Use
  Company Number: US-MERCK-1210USA008766

PATIENT
  Sex: Female

DRUGS (4)
  1. PEG-INTRON [Suspect]
     Indication: HEPATITIS C
     Dosage: UNK
     Dates: start: 20080101, end: 20080301
  2. PEG-INTRON [Suspect]
     Dosage: UNK
     Dates: start: 20081003, end: 20090703
  3. RIBAVIRIN [Suspect]
     Indication: HEPATITIS C
     Dosage: UNK
     Dates: start: 20080101, end: 20080301
  4. RIBAVIRIN [Suspect]
     Dosage: UNK
     Dates: start: 20081003, end: 20090703

REACTIONS (18)
  - Goitre [Unknown]
  - Suicidal ideation [Unknown]
  - Arthritis [Unknown]
  - Pain [Unknown]
  - Crying [Unknown]
  - Sluggishness [Unknown]
  - Vomiting [Unknown]
  - Nervousness [Unknown]
  - Blood count abnormal [Unknown]
  - Hepatitis [Unknown]
  - Vomiting [Unknown]
  - Food aversion [Unknown]
  - Dysgeusia [Unknown]
  - Food aversion [Unknown]
  - Blood cholesterol increased [Unknown]
  - Depression [Unknown]
  - Fatigue [Unknown]
  - Dizziness [Unknown]
